FAERS Safety Report 5068823-6 (Version None)
Quarter: 2006Q3

REPORT INFORMATION
  Report Type: 
  Country: None (occurrence: None)
  Receive Date: 20060802
  Receipt Date: 20060419
  Transmission Date: 20061208
  Serious: No
  Sender: FDA-Public Use
  Company Number: US-BRISTOL-MYERS SQUIBB COMPANY-13350921

PATIENT
  Age: 81 Year
  Sex: Female
  Weight: 56 kg

DRUGS (6)
  1. COUMADIN [Suspect]
     Indication: ANTICOAGULANT THERAPY
     Dates: end: 20060402
  2. COUMADIN [Suspect]
     Dates: start: 20060403
  3. SLOW FE [Suspect]
     Indication: ANAEMIA
     Route: 048
     Dates: start: 20060201
  4. ACTONEL [Concomitant]
  5. BENICAR [Concomitant]
  6. METOPROLOL [Concomitant]

REACTIONS (1)
  - INTERNATIONAL NORMALISED RATIO INCREASED [None]
